FAERS Safety Report 7750597-9 (Version None)
Quarter: 2011Q3

REPORT INFORMATION
  Report Type: 
  Country: None (occurrence: None)
  Receive Date: 20110912
  Receipt Date: 20110909
  Transmission Date: 20111222
  Serious: Yes (Life-Threatening, Hospitalization, Other)
  Sender: FDA-Public Use
  Company Number: SP03948

PATIENT
  Age: 36 Year
  Sex: Female

DRUGS (4)
  1. VISICOL [Suspect]
     Indication: BOWEL PREPARATION
     Dosage: 50 GM, ORAL
     Route: 048
     Dates: start: 20110803, end: 20110803
  2. POTASSIUM CHLORIDE [Concomitant]
  3. SENNOSIDE [Concomitant]
  4. SPIRONOLACTONE [Concomitant]

REACTIONS (11)
  - RENAL IMPAIRMENT [None]
  - RESPIRATORY PARALYSIS [None]
  - URINE OUTPUT DECREASED [None]
  - BLOOD CREATININE INCREASED [None]
  - DIALYSIS [None]
  - HYPOAESTHESIA [None]
  - TETANY [None]
  - BLOOD UREA INCREASED [None]
  - ACUTE PHOSPHATE NEPHROPATHY [None]
  - HYPOCALCAEMIA [None]
  - DYSLALIA [None]
